FAERS Safety Report 4482609-2 (Version None)
Quarter: 2004Q4

REPORT INFORMATION
  Report Type: 
  Country: None (occurrence: None)
  Receive Date: 20041022
  Receipt Date: 20041011
  Transmission Date: 20050328
  Serious: Yes (Hospitalization)
  Sender: FDA-Public Use
  Company Number: IT-JNJFOC-20041003157

PATIENT
  Age: 43 Year
  Sex: Female

DRUGS (2)
  1. HALDOL DECANOAS [Suspect]
     Route: 030
  2. HALOPERIDOL ( SERENASE) [Suspect]
     Route: 049

REACTIONS (1)
  - RHABDOMYOLYSIS [None]
